FAERS Safety Report 6132523-1 (Version None)
Quarter: 2009Q1

REPORT INFORMATION
  Report Type: 
  Country: None (occurrence: None)
  Receive Date: 20090325
  Receipt Date: 20090312
  Transmission Date: 20090719
  Serious: Yes (Life-Threatening, Hospitalization)
  Sender: FDA-Public Use
  Company Number: GB-GENENTECH-279441

PATIENT
  Age: 57 Year
  Sex: Female

DRUGS (5)
  1. MABTHERA [Suspect]
     Indication: RHEUMATOID ARTHRITIS
     Dosage: 1 G, UNK
     Route: 042
     Dates: start: 20080515, end: 20080529
  2. LEFLUNOMIDE [Concomitant]
     Indication: RHEUMATOID ARTHRITIS
  3. NAPROXEN [Concomitant]
     Indication: RHEUMATOID ARTHRITIS
  4. NAPROXEN [Concomitant]
     Indication: PAIN
  5. SULFASALAZINE [Concomitant]
     Indication: RHEUMATOID ARTHRITIS

REACTIONS (2)
  - ANGINA PECTORIS [None]
  - MYOCARDIAL INFARCTION [None]
